FAERS Safety Report 24244986 (Version 1)
Quarter: 2024Q3

REPORT INFORMATION
  Report Type: Spontaneous
  Country: JP (occurrence: JP)
  Receive Date: 20240823
  Receipt Date: 20240823
  Transmission Date: 20241017
  Serious: Yes (Other)
  Sender: KYOWA
  Company Number: JP-KYOWAKIRIN-2024KK019386

PATIENT

DRUGS (7)
  1. BENSERAZIDE HYDROCHLORIDE\LEVODOPA [Suspect]
     Active Substance: BENSERAZIDE HYDROCHLORIDE\LEVODOPA
     Indication: Product used for unknown indication
     Dosage: 1.5 DF,THE PATIENT TOOK EC-DOPARL AT UP TO 12 TABLETS OR SO.
     Route: 048
     Dates: start: 20200901
  2. ISTRADEFYLLINE [Suspect]
     Active Substance: ISTRADEFYLLINE
     Indication: Product used for unknown indication
     Dosage: 20 MG,THE PATIENT INCREASED THE DOSE OF NOURIAST FROM 20 MG TO 40 MG. SHE WAS INSTRUCTED TO TAKE 1 T
     Route: 048
     Dates: start: 20240409
  3. AZILECT [Concomitant]
     Active Substance: RASAGILINE MESYLATE
     Indication: Product used for unknown indication
     Dosage: UNK
     Route: 065
     Dates: start: 20200901, end: 20201027
  4. NEUPRO [Concomitant]
     Active Substance: ROTIGOTINE
     Indication: Product used for unknown indication
     Dosage: UNK
     Route: 003
     Dates: start: 20200901, end: 20201027
  5. SAFINAMIDE MESYLATE [Concomitant]
     Active Substance: SAFINAMIDE MESYLATE
     Indication: Product used for unknown indication
     Dosage: UNK
     Route: 065
  6. ZONISAMIDE [Concomitant]
     Active Substance: ZONISAMIDE
     Indication: Product used for unknown indication
     Dosage: UNK
     Route: 065
  7. RYBELSUS [Concomitant]
     Active Substance: SEMAGLUTIDE
     Indication: Product used for unknown indication
     Dosage: UNK,SHE WAS TAKING RYBELSUS 3 MG AS A TRIAL.
     Route: 065

REACTIONS (13)
  - Diabetes mellitus [Unknown]
  - Peripheral swelling [Unknown]
  - Limb discomfort [Unknown]
  - Lip injury [Unknown]
  - Dysstasia [Unknown]
  - Plantar fasciitis [Unknown]
  - Abdominal pain upper [Unknown]
  - Pain [Unknown]
  - Dizziness [Unknown]
  - Abdominal pain [Unknown]
  - Product dose omission issue [Unknown]
  - Drug ineffective [Unknown]
  - Treatment noncompliance [Unknown]
